FAERS Safety Report 23849376 (Version 2)
Quarter: 2024Q2

REPORT INFORMATION
  Report Type: Spontaneous
  Country: JP (occurrence: JP)
  Receive Date: 20240513
  Receipt Date: 20240523
  Transmission Date: 20240715
  Serious: Yes (Other)
  Sender: FDA-Public Use
  Company Number: JP-TAIHOP-2024-004768

PATIENT
  Age: 7 Decade
  Sex: Male

DRUGS (2)
  1. LONSURF [Suspect]
     Active Substance: TIPIRACIL HYDROCHLORIDE\TRIFLURIDINE
     Indication: Colorectal cancer stage II
     Dosage: DOSE, FREQUENCY, FORM STRENGTH AND CYCLE WERE UNKNOWN.
     Route: 048
  2. BEVACIZUMAB [Concomitant]
     Active Substance: BEVACIZUMAB
     Indication: Colorectal cancer stage II

REACTIONS (4)
  - Urinary retention [Unknown]
  - Faecaloma [Unknown]
  - Back pain [Unknown]
  - Muscle strain [Unknown]
